FAERS Safety Report 6746593-0 (Version None)
Quarter: 2010Q2

REPORT INFORMATION
  Report Type: 
  Country: None (occurrence: None)
  Receive Date: 20100528
  Receipt Date: 20091006
  Transmission Date: 20101027
  Serious: No
  Sender: FDA-Public Use
  Company Number: US-ASTRAZENECA-2009SE31726

PATIENT
  Sex: Female

DRUGS (4)
  1. PRILOSEC OTC [Suspect]
     Route: 048
     Dates: start: 20090927
  2. THYROID THERAPY [Concomitant]
     Dosage: UNKNOWN
  3. PEPCID [Concomitant]
     Dosage: UNKNOWN
  4. PROPRANOLOL [Concomitant]
     Dosage: UNKNOWN

REACTIONS (2)
  - BALANCE DISORDER [None]
  - DIZZINESS [None]
